FAERS Safety Report 8179480-4 (Version None)
Quarter: 2012Q1

REPORT INFORMATION
  Report Type: 
  Country: None (occurrence: None)
  Receive Date: 20120229
  Receipt Date: 20120229
  Transmission Date: 20120608
  Serious: No
  Sender: FDA-Public Use
  Company Number: None

PATIENT
  Age: 62 Year
  Sex: Male
  Weight: 76.6579 kg

DRUGS (2)
  1. LOHIST-D (LARKEN LAB ORGRX) ONE TEASPOONFUL EVERY 4 TO 6 HRS [Suspect]
     Indication: COUGH
     Dosage: ONE TEASPOONFULL EVERY R TO 6 HRS
     Dates: start: 20120109
  2. LOHIST-D (LARKEN LAB ORGRX) ONE TEASPOONFUL EVERY 4 TO 6 HRS [Suspect]
     Indication: COUGH
     Dosage: ONE TEASPOONFULL EVERY R TO 6 HRS
     Dates: start: 20120111

REACTIONS (3)
  - DIZZINESS [None]
  - HEARING IMPAIRED [None]
  - VOMITING [None]
